FAERS Safety Report 7445623-0 (Version None)
Quarter: 2011Q2

REPORT INFORMATION
  Report Type: 
  Country: None (occurrence: None)
  Receive Date: 20110429
  Receipt Date: 20110425
  Transmission Date: 20111010
  Serious: Yes (Hospitalization)
  Sender: FDA-Public Use
  Company Number: BR-ROCHE-773387

PATIENT
  Sex: Male
  Weight: 87 kg

DRUGS (9)
  1. MORPHINE [Concomitant]
  2. METHYLPREDNISOLONE [Concomitant]
  3. LASIX [Concomitant]
  4. TOCILIZUMAB [Suspect]
     Dosage: FORM: INFUSION.
     Route: 042
     Dates: start: 20101101, end: 20110319
  5. MIOSAN [Concomitant]
  6. TRAMAL [Concomitant]
  7. RIVOTRIL [Concomitant]
     Dosage: DOSE: 4-6 MG.
  8. DORMONID [Concomitant]
  9. FLUOXETINE [Concomitant]

REACTIONS (14)
  - GASTROINTESTINAL DISORDER [None]
  - BONE PAIN [None]
  - PELVIC PAIN [None]
  - FOOT DEFORMITY [None]
  - HAND DEFORMITY [None]
  - SPONDYLITIS [None]
  - MUSCULOSKELETAL PAIN [None]
  - OSTEOARTHRITIS [None]
  - PAIN IN EXTREMITY [None]
  - HOSPITALISATION [None]
  - RHEUMATOID ARTHRITIS [None]
  - ARTHRALGIA [None]
  - CROHN'S DISEASE [None]
  - URINARY RETENTION [None]
